FAERS Safety Report 7480664-9 (Version None)
Quarter: 2011Q2

REPORT INFORMATION
  Report Type: 
  Country: None (occurrence: None)
  Receive Date: 20110505
  Receipt Date: 20110301
  Transmission Date: 20111010
  Serious: Yes (Other)
  Sender: FDA-Public Use
  Company Number: GB-ACCORD-008371

PATIENT
  Age: 55 Year
  Sex: Female

DRUGS (4)
  1. PACLITAXEL [Suspect]
     Indication: OVARIAN EPITHELIAL CANCER
     Dosage: 350.00 MG-1.00 TIMES PER 3.0 WEEKS, INTRAVENOUS (NOT OTHERWISE SPECIFIED)
     Route: 042
     Dates: start: 20100125
  2. DEXAMETHASONE [Concomitant]
  3. ONDANSETRON [Concomitant]
  4. CARBOPLATIN [Concomitant]

REACTIONS (1)
  - EMBOLISM ARTERIAL [None]
